FAERS Safety Report 23351542 (Version 1)
Quarter: 2023Q4

REPORT INFORMATION
  Report Type: Spontaneous
  Country: US (occurrence: None)
  Receive Date: 20231229
  Receipt Date: 20231229
  Transmission Date: 20240109
  Serious: Yes (Death)
  Sender: FDA-Public Use
  Company Number: None

PATIENT
  Age: 55 Year
  Sex: Female

DRUGS (10)
  1. OCTREOTIDE [Suspect]
     Active Substance: OCTREOTIDE
     Indication: Gastrointestinal haemorrhage
     Dosage: FREQUENCY : TWICE A DAY;?
     Route: 058
     Dates: start: 20231010, end: 20231214
  2. ALBUTEROL HFA INH [Concomitant]
  3. ATORVASTATIN [Concomitant]
  4. CALCITRIOL [Concomitant]
  5. CALCIUM ACETATE [Concomitant]
  6. DICYCLOMINE [Concomitant]
  7. ENTRESTO 24-26MG [Concomitant]
  8. FERROUS SULFATE 325MG [Concomitant]
  9. METOPROLOL ER SUCCINATE [Concomitant]
  10. PANTOPRAZOLE [Concomitant]

REACTIONS (1)
  - Death [None]

NARRATIVE: CASE EVENT DATE: 20231214
